FAERS Safety Report 18628277 (Version 1)
Quarter: 2020Q4

REPORT INFORMATION
  Report Type: Spontaneous
  Country: US (occurrence: US)
  Receive Date: 20201217
  Receipt Date: 20201217
  Transmission Date: 20210114
  Serious: No
  Sender: FDA-Public Use
  Company Number: None

PATIENT
  Age: 75 Year
  Sex: Female
  Weight: 79.2 kg

DRUGS (11)
  1. AMLODIPINE [Concomitant]
     Active Substance: AMLODIPINE BESYLATE
  2. EXEMESTANE. [Concomitant]
     Active Substance: EXEMESTANE
  3. METHADONE [Concomitant]
     Active Substance: METHADONE HYDROCHLORIDE
  4. TRAZODONE [Concomitant]
     Active Substance: TRAZODONE HYDROCHLORIDE
  5. EVEROLIMUS. [Suspect]
     Active Substance: EVEROLIMUS
     Indication: BREAST CANCER FEMALE
     Route: 048
     Dates: start: 20200710
  6. IPRATROPIUM/ALBUTEROL [Concomitant]
     Active Substance: ALBUTEROL\IPRATROPIUM
  7. MEGESTROL [Concomitant]
     Active Substance: MEGESTROL
  8. OXYCODONE [Concomitant]
     Active Substance: OXYCODONE
  9. ALBUTEROL. [Concomitant]
     Active Substance: ALBUTEROL
  10. ESOMEPRAZOLE. [Concomitant]
     Active Substance: ESOMEPRAZOLE MAGNESIUM
  11. OMEPRAZOLE. [Concomitant]
     Active Substance: OMEPRAZOLE

REACTIONS (1)
  - Dizziness [None]

NARRATIVE: CASE EVENT DATE: 20201216
